FAERS Safety Report 4656455-0 (Version None)
Quarter: 2005Q2

REPORT INFORMATION
  Report Type: 
  Country: None (occurrence: None)
  Receive Date: 20050509
  Receipt Date: 20050427
  Transmission Date: 20051028
  Serious: Yes (Life-Threatening, Hospitalization)
  Sender: FDA-Public Use
  Company Number: US-AMGEN-US129367

PATIENT
  Sex: Male
  Weight: 106.7 kg

DRUGS (25)
  1. KEPIVANCE [Suspect]
     Indication: STOMATITIS
     Route: 042
     Dates: start: 20050419, end: 20050421
  2. MELPHALAN [Concomitant]
     Dates: start: 20050422
  3. EFFEXOR [Concomitant]
  4. ATIVAN [Concomitant]
  5. ELAVIL [Concomitant]
  6. RESTORIL [Concomitant]
  7. MS CONTIN [Concomitant]
  8. MORPHINE [Concomitant]
  9. DIFLUCAN [Concomitant]
  10. CIPRO [Concomitant]
  11. ACYCLOVIR [Concomitant]
     Dates: start: 20050422
  12. KEFLEX [Concomitant]
  13. PERIDEX [Concomitant]
  14. COUMADIN [Concomitant]
     Route: 048
  15. LASIX [Concomitant]
  16. ZOCOR [Concomitant]
  17. CORDARONE [Concomitant]
  18. POTASSIUM CHLORIDE [Concomitant]
  19. AMARYL [Concomitant]
  20. PROTONIX [Concomitant]
  21. SENOKOT [Concomitant]
  22. PRILOSEC [Concomitant]
     Route: 048
  23. LORAZEPAM [Concomitant]
     Route: 048
  24. RITALIN [Concomitant]
     Route: 048
  25. LISINOPRIL [Concomitant]
     Route: 048

REACTIONS (8)
  - ACUTE MYOCARDIAL INFARCTION [None]
  - CARDIOGENIC SHOCK [None]
  - CARDIOMEGALY [None]
  - HYPOTENSION [None]
  - PULMONARY OEDEMA [None]
  - RENAL FAILURE [None]
  - RESPIRATORY FAILURE [None]
  - TACHYCARDIA [None]
